FAERS Safety Report 18568109 (Version 1)
Quarter: 2020Q4

REPORT INFORMATION
  Report Type: Spontaneous
  Country: GB (occurrence: GB)
  Receive Date: 20201202
  Receipt Date: 20201202
  Transmission Date: 20210114
  Serious: Yes (Other)
  Sender: FDA-Public Use
  Company Number: GB-TEVA-2020-GB-1853960

PATIENT
  Age: 73 Year
  Sex: Male

DRUGS (3)
  1. CLARITHROMYCIN. [Suspect]
     Active Substance: CLARITHROMYCIN
     Indication: CELLULITIS
     Dosage: 2 DOSAGE FORMS
     Route: 048
  2. FUCIBET [Concomitant]
  3. ANUSOL HC [Concomitant]
     Active Substance: HYDROCORTISONE

REACTIONS (3)
  - Hyperhidrosis [Recovered/Resolved]
  - Balance disorder [Unknown]
  - Palpitations [Recovered/Resolved]
